FAERS Safety Report 7139364-7 (Version None)
Quarter: 2010Q4

REPORT INFORMATION
  Report Type: 
  Country: None (occurrence: None)
  Receive Date: 20101206
  Receipt Date: 20101126
  Transmission Date: 20110411
  Serious: Yes (Other)
  Sender: FDA-Public Use
  Company Number: GB-ABBOTT-10P-167-0688655-00

PATIENT
  Age: 78 Year
  Sex: Male

DRUGS (1)
  1. PROSTAP [Suspect]
     Indication: PRODUCT USED FOR UNKNOWN INDICATION
     Route: 065
     Dates: start: 20100201

REACTIONS (2)
  - DRUG INEFFECTIVE [None]
  - PROSTATIC SPECIFIC ANTIGEN INCREASED [None]
